FAERS Safety Report 8850824 (Version 2)
Quarter: 2012Q4

REPORT INFORMATION
  Report Type: 
  Country: US (occurrence: US)
  Receive Date: 20121019
  Receipt Date: 20121224
  Transmission Date: 20130627
  Serious: Yes (Death, Hospitalization, Other)
  Sender: FDA-Public Use
  Company Number: US-ASTELLAS-2012US010242

PATIENT
  Age: 56 Year
  Sex: Male
  Weight: 149 kg

DRUGS (7)
  1. PROGRAF [Suspect]
     Indication: RENAL TRANSPLANT
     Dosage: 2 mg, bid
     Route: 048
     Dates: start: 20080606
  2. PROGRAF [Suspect]
     Dosage: 2 mg in the morning and 1 mg in the evening
     Route: 048
     Dates: end: 20120928
  3. PROGRAF [Suspect]
     Dosage: UNK
     Route: 048
     Dates: start: 201210, end: 20121013
  4. PREDNISONE [Concomitant]
     Indication: PRODUCT USED FOR UNKNOWN INDICATION
     Dosage: 10 mg, UID/QD
     Route: 048
     Dates: start: 20080606
  5. PANTOPRAZOLE [Concomitant]
     Indication: PRODUCT USED FOR UNKNOWN INDICATION
     Dosage: 40 mg, UID/QD
     Route: 048
     Dates: start: 20080606
  6. MYFORTIC [Concomitant]
     Indication: PRODUCT USED FOR UNKNOWN INDICATION
     Dosage: 360 mg, bid
     Route: 048
     Dates: start: 20080606, end: 201210
  7. METOPROLOL [Concomitant]
     Indication: PRODUCT USED FOR UNKNOWN INDICATION
     Dosage: 25 mg, UID/QD
     Route: 048
     Dates: start: 20080606

REACTIONS (25)
  - Septic shock [Fatal]
  - Obesity [Fatal]
  - Cardiac arrest [Fatal]
  - Congestive cardiomyopathy [Unknown]
  - Hypovolaemia [Unknown]
  - Acute respiratory failure [Unknown]
  - Renal tubular necrosis [Unknown]
  - Deep vein thrombosis [Unknown]
  - Hyperparathyroidism [Unknown]
  - Hypothyroidism [Unknown]
  - Spinal osteoarthritis [Unknown]
  - Renal artery stenosis [Unknown]
  - Hypertensive heart disease [Unknown]
  - Arteriosclerosis [Unknown]
  - Sperm granuloma [Unknown]
  - Autoimmune thyroiditis [Unknown]
  - Fall [Unknown]
  - Anaemia [Unknown]
  - Hyperlipidaemia [Unknown]
  - Osteoporosis [Unknown]
  - Anxiety [Unknown]
  - Gout [Unknown]
  - Decubitus ulcer [Unknown]
  - Skin ulcer [Unknown]
  - Peripheral vascular disorder [Unknown]
